FAERS Safety Report 6787800-8 (Version None)
Quarter: 2010Q2

REPORT INFORMATION
  Report Type: 
  Country: None (occurrence: None)
  Receive Date: 20100623
  Receipt Date: 20080225
  Transmission Date: 20101027
  Serious: Yes (Other)
  Sender: FDA-Public Use
  Company Number: US-PFIZER INC-2007064879

PATIENT
  Sex: Female

DRUGS (2)
  1. DEPO-MEDROL [Suspect]
     Dates: start: 20070101
  2. LIDOCAINE [Suspect]
     Dates: start: 20070101

REACTIONS (6)
  - AGITATION [None]
  - BURNING SENSATION [None]
  - FEELING JITTERY [None]
  - HYPOAESTHESIA [None]
  - MUSCULAR WEAKNESS [None]
  - MYALGIA [None]
